FAERS Safety Report 7773697-6 (Version None)
Quarter: 2011Q3

REPORT INFORMATION
  Report Type: 
  Country: None (occurrence: None)
  Receive Date: 20110920
  Receipt Date: 20110909
  Transmission Date: 20111222
  Serious: Yes (Death, Other)
  Sender: FDA-Public Use
  Company Number: US-006277

PATIENT
  Age: 22 Year
  Sex: Male

DRUGS (2)
  1. LEVOTHYROXINE SODIUM [Concomitant]
  2. SOMATROPIN RDNA [Suspect]
     Indication: GROWTH HORMONE DEFICIENCY

REACTIONS (3)
  - HYPOTHYROIDISM [None]
  - NEUTROPENIA [None]
  - BONE SARCOMA [None]
